FAERS Safety Report 25194492 (Version 1)
Quarter: 2025Q2

REPORT INFORMATION
  Report Type: Report from Study
  Country: US (occurrence: US)
  Receive Date: 20250414
  Receipt Date: 20250414
  Transmission Date: 20250717
  Serious: Yes (Death, Hospitalization, Other)
  Sender: MERCK SHARP AND DOHME
  Company Number: US-009507513-2412USA000865

PATIENT
  Age: 75 Year
  Sex: Male
  Weight: 79.5 kg

DRUGS (4)
  1. PREVYMIS [Suspect]
     Active Substance: LETERMOVIR
     Route: 048
  2. UNSPECIFIED INGREDIENT [Concomitant]
     Active Substance: UNSPECIFIED INGREDIENT
  3. REGLAN [Concomitant]
     Active Substance: METOCLOPRAMIDE HYDROCHLORIDE
  4. TOBRAMYCIN [Concomitant]
     Active Substance: TOBRAMYCIN

REACTIONS (5)
  - Death [Fatal]
  - Hospitalisation [Recovered/Resolved]
  - Tracheostomy [Unknown]
  - Aphonia [Unknown]
  - Large intestine perforation [Unknown]

NARRATIVE: CASE EVENT DATE: 20240801
